FAERS Safety Report 17022280 (Version 1)
Quarter: 2019Q4

REPORT INFORMATION
  Report Type: Spontaneous
  Country: SG (occurrence: SG)
  Receive Date: 20191112
  Receipt Date: 20191112
  Transmission Date: 20200122
  Serious: Yes (Hospitalization)
  Sender: FDA-Public Use
  Company Number: SG-MEDEXUS PHARMA, INC.-2019MED00253

PATIENT
  Age: 46 Year
  Sex: Female

DRUGS (6)
  1. FOLIC ACID. [Concomitant]
     Active Substance: FOLIC ACID
     Dosage: 30 MG EVERY 6 HOURS
     Route: 042
  2. METHOTREXATE. [Suspect]
     Active Substance: METHOTREXATE
     Dosage: 2.5 G/M2  AT WEEK 3, FOR 5 BIWEEKLY DOSES
     Route: 065
  3. RITUXIMAB. [Concomitant]
     Active Substance: RITUXIMAB
     Indication: LYMPHOMA
     Route: 042
  4. METHOTREXATE. [Suspect]
     Active Substance: METHOTREXATE
     Dosage: 12 MG, 2 DOSES AT WEEK 7 AND 9
     Route: 037
  5. DEXAMETHASONE. [Concomitant]
     Active Substance: DEXAMETHASONE
     Indication: LYMPHOMA
     Route: 065
  6. METHOTREXATE. [Suspect]
     Active Substance: METHOTREXATE
     Indication: LYMPHOMA
     Dosage: 3.5 G/M2, GIVEN OVER 3 HOURS
     Route: 065

REACTIONS (3)
  - Choreoathetosis [Recovered/Resolved]
  - Focal dyscognitive seizures [Recovered/Resolved]
  - Toxic leukoencephalopathy [Recovered/Resolved]
